FAERS Safety Report 13851901 (Version 3)
Quarter: 2017Q4

REPORT INFORMATION
  Report Type: Spontaneous
  Country: US (occurrence: US)
  Receive Date: 20170809
  Receipt Date: 20171027
  Transmission Date: 20180320
  Serious: Yes (Other)
  Sender: FDA-Public Use
  Company Number: US-TEVA-794305ACC

PATIENT
  Age: 54 Year
  Sex: Female

DRUGS (19)
  1. EFFEXOR [Concomitant]
     Active Substance: VENLAFAXINE HYDROCHLORIDE
  2. METHOCARBAM [Concomitant]
     Route: 065
  3. ESZOPICLONE. [Concomitant]
     Active Substance: ESZOPICLONE
  4. ROSUVASTATIN. [Concomitant]
     Active Substance: ROSUVASTATIN
  5. COPAXONE [Suspect]
     Active Substance: GLATIRAMER ACETATE
     Indication: MULTIPLE SCLEROSIS
     Route: 058
     Dates: start: 20151020
  6. LISINOPRIL. [Concomitant]
     Active Substance: LISINOPRIL
  7. GABAPENTIN. [Concomitant]
     Active Substance: GABAPENTIN
  8. VITAMIN B12 [Concomitant]
     Active Substance: CYANOCOBALAMIN
  9. TRAZODONE [Concomitant]
     Active Substance: TRAZODONE HYDROCHLORIDE
  10. OXCARBAZEPINE. [Concomitant]
     Active Substance: OXCARBAZEPINE
  11. HYDROCO [Concomitant]
  12. FENOFIBRATE. [Concomitant]
     Active Substance: FENOFIBRATE
     Route: 065
  13. ONDANSETRON [Concomitant]
     Active Substance: ONDANSETRON
  14. ESZOPICLONE. [Concomitant]
     Active Substance: ESZOPICLONE
  15. TIZANIDINE. [Concomitant]
     Active Substance: TIZANIDINE
  16. CYMBALTA [Concomitant]
     Active Substance: DULOXETINE HYDROCHLORIDE
  17. QUETIAPINE. [Concomitant]
     Active Substance: QUETIAPINE
  18. SIMVASTATIN. [Concomitant]
     Active Substance: SIMVASTATIN
  19. VITAMIN D [Concomitant]
     Active Substance: CHOLECALCIFEROL

REACTIONS (6)
  - Panic attack [Not Recovered/Not Resolved]
  - Memory impairment [Not Recovered/Not Resolved]
  - Fall [Not Recovered/Not Resolved]
  - Injection site reaction [Not Recovered/Not Resolved]
  - Urinary retention [Not Recovered/Not Resolved]
  - Injection site pruritus [Not Recovered/Not Resolved]
